FAERS Safety Report 8942603 (Version 3)
Quarter: 2013Q2

REPORT INFORMATION
  Report Type: Report from Study
  Country: JP (occurrence: JP)
  Receive Date: 20121204
  Receipt Date: 20130425
  Transmission Date: 20140414
  Serious: Yes (Death)
  Sender: FDA-Public Use
  Company Number: JP-JNJFOC-20121114203

PATIENT
  Sex: Female

DRUGS (1)
  1. ONEDURO [Suspect]
     Indication: CANCER PAIN
     Dosage: HALF SIDE PATCH APPLICATION (6.25 UG/HR)
     Route: 062
     Dates: start: 20121101

REACTIONS (4)
  - Renal cancer [Fatal]
  - Pancreatic carcinoma [Fatal]
  - Bladder cancer [Fatal]
  - Wrong technique in drug usage process [Unknown]
